FAERS Safety Report 24848208 (Version 1)
Quarter: 2025Q1

REPORT INFORMATION
  Report Type: Spontaneous
  Country: US (occurrence: US)
  Receive Date: 20250116
  Receipt Date: 20250116
  Transmission Date: 20250409
  Serious: No
  Sender: BIOGEN
  Company Number: US-BIOGEN-2024BI01251830

PATIENT
  Sex: Female

DRUGS (4)
  1. VUMERITY [Suspect]
     Active Substance: DIROXIMEL FUMARATE
     Indication: Multiple sclerosis
     Dosage: TAKE 2 CAPSULES (462MG) BY MOUTH TWICE DAILY.
     Route: 050
     Dates: start: 20210126
  2. FOLIC ACID [Concomitant]
     Active Substance: FOLIC ACID
     Route: 050
  3. ASPIRIN [Concomitant]
     Active Substance: ASPIRIN
     Route: 050
  4. HUMALOG [Concomitant]
     Active Substance: INSULIN LISPRO
     Route: 050

REACTIONS (2)
  - Product dose omission in error [Unknown]
  - Brain fog [Unknown]
